FAERS Safety Report 16848516 (Version 2)
Quarter: 2020Q4

REPORT INFORMATION
  Report Type: Report from Study
  Country: US (occurrence: US)
  Receive Date: 20190925
  Receipt Date: 20201225
  Transmission Date: 20210113
  Serious: Yes (Other)
  Sender: FDA-Public Use
  Company Number: US-EMD SERONO-9117791

PATIENT

DRUGS (1)
  1. SEROSTIM [Suspect]
     Active Substance: SOMATROPIN
     Indication: CACHEXIA
     Dosage: 7 VIAL PACK
     Route: 058
     Dates: start: 20180925

REACTIONS (2)
  - Diabetes mellitus [Unknown]
  - Diabetic ketoacidosis [Unknown]
